FAERS Safety Report 6840663-4 (Version None)
Quarter: 2010Q3

REPORT INFORMATION
  Report Type: 
  Country: None (occurrence: None)
  Receive Date: 20100714
  Receipt Date: 20100709
  Transmission Date: 20110219
  Serious: Yes (Hospitalization)
  Sender: FDA-Public Use
  Company Number: GB-PFIZER INC-2010081491

PATIENT
  Age: 71 Year
  Sex: Female

DRUGS (1)
  1. CELECOXIB [Suspect]
     Indication: RHEUMATOID ARTHRITIS
     Dosage: 100 MG, 2 TIMES EVERY 2 DAYS
     Route: 048
     Dates: start: 20090702

REACTIONS (1)
  - RAYNAUD'S PHENOMENON [None]
